FAERS Safety Report 20649929 (Version 1)
Quarter: 2022Q1

REPORT INFORMATION
  Report Type: Report from Study
  Country: US (occurrence: US)
  Receive Date: 20220329
  Receipt Date: 20220329
  Transmission Date: 20220423
  Serious: Yes (Death, Hospitalization, Other)
  Sender: FDA-Public Use
  Company Number: US-TAKEDA-2022TUS020587

PATIENT
  Sex: Female

DRUGS (1)
  1. PONATINIB [Suspect]
     Active Substance: PONATINIB
     Indication: Acute lymphocytic leukaemia
     Dosage: 30 MILLIGRAM
     Route: 065
     Dates: end: 20220318

REACTIONS (5)
  - Death [Fatal]
  - Influenza [Unknown]
  - Seizure [Unknown]
  - Cerebral haemorrhage [Unknown]
  - Laboratory test abnormal [Unknown]
